FAERS Safety Report 10534468 (Version 3)
Quarter: 2014Q4

REPORT INFORMATION
  Report Type: Spontaneous
  Country: HU (occurrence: HU)
  Receive Date: 20141022
  Receipt Date: 20141118
  Transmission Date: 20150529
  Serious: Yes (Hospitalization, Other)
  Sender: FDA-Public Use
  Company Number: HU-TEVA-515205ISR

PATIENT
  Age: 50 Year
  Sex: Male

DRUGS (8)
  1. CLONAZEPAM. [Concomitant]
     Active Substance: CLONAZEPAM
  2. ETOPOSIDE. [Suspect]
     Active Substance: ETOPOSIDE
     Indication: TESTICULAR NEOPLASM
     Dosage: 4 BEP CYCLES
  3. BLEOMYCIN [Suspect]
     Active Substance: BLEOMYCIN SULFATE
     Indication: TESTICULAR NEOPLASM
     Dosage: 4 BEP CYCLES
  4. G-CSF [Concomitant]
     Active Substance: FILGRASTIM
  5. CISPLATIN. [Suspect]
     Active Substance: CISPLATIN
     Indication: TESTICULAR NEOPLASM
     Dosage: 4 BEP CYCLES
  6. CARBAMAZEPINE. [Concomitant]
     Active Substance: CARBAMAZEPINE
  7. LMWH [Concomitant]
  8. RISPERIDONE. [Concomitant]
     Active Substance: RISPERIDONE

REACTIONS (4)
  - Epilepsy [Recovered/Resolved]
  - Febrile neutropenia [Recovered/Resolved]
  - Deep vein thrombosis [Recovered/Resolved]
  - Febrile bone marrow aplasia [Recovered/Resolved]
